FAERS Safety Report 4763843-0 (Version None)
Quarter: 2005Q3

REPORT INFORMATION
  Report Type: 
  Country: None (occurrence: None)
  Receive Date: 20050906
  Receipt Date: 20050824
  Transmission Date: 20060218
  Serious: Yes (Other)
  Sender: FDA-Public Use
  Company Number: 2005119889

PATIENT
  Age: 48 Year
  Sex: Female
  Weight: 53.5244 kg

DRUGS (2)
  1. XANAX [Suspect]
     Indication: PANIC REACTION
     Dosage: 8 MG (2  MG, 4 IN 1 D)
     Dates: start: 20030101
  2. PROZAC [Concomitant]

REACTIONS (1)
  - HEPATITIS C [None]
